FAERS Safety Report 25431370 (Version 2)
Quarter: 2025Q2

REPORT INFORMATION
  Report Type: Spontaneous
  Country: US (occurrence: US)
  Receive Date: 20250613
  Receipt Date: 20250619
  Transmission Date: 20250716
  Serious: Yes (Hospitalization, Other)
  Sender: BAXTER
  Company Number: US-BAXTER-2025BAX016606

PATIENT
  Age: 76 Year
  Sex: Female

DRUGS (7)
  1. VASOPRESSIN [Suspect]
     Active Substance: VASOPRESSIN
     Indication: Vasopressive therapy
     Route: 042
     Dates: start: 20250603
  2. VASOPRESSIN [Suspect]
     Active Substance: VASOPRESSIN
     Indication: Blood pressure management
  3. VASOPRESSIN [Suspect]
     Active Substance: VASOPRESSIN
     Indication: Hypotension
  4. LEVOPHED [Suspect]
     Active Substance: NOREPINEPHRINE BITARTRATE
     Indication: Vasopressive therapy
     Route: 042
     Dates: start: 20250603
  5. LEVOPHED [Suspect]
     Active Substance: NOREPINEPHRINE BITARTRATE
     Indication: Blood pressure management
  6. LEVOPHED [Suspect]
     Active Substance: NOREPINEPHRINE BITARTRATE
     Indication: Hypotension
  7. FENTANYL [Suspect]
     Active Substance: FENTANYL
     Route: 042

REACTIONS (5)
  - Haematoma [Recovered/Resolved]
  - Mean arterial pressure decreased [Unknown]
  - Device delivery system issue [Unknown]
  - Device breakage [Unknown]
  - Device leakage [Unknown]

NARRATIVE: CASE EVENT DATE: 20250603
